FAERS Safety Report 5543791-9 (Version None)
Quarter: 2007Q4

REPORT INFORMATION
  Report Type: 
  Country: None (occurrence: None)
  Receive Date: 20071210
  Receipt Date: 20071206
  Transmission Date: 20080405
  Serious: Yes (Other)
  Sender: FDA-Public Use
  Company Number: IN-BOEHRINGER INGELHEIM PHARMACEUTICALS, INC.-2007-DE-07220GD

PATIENT

DRUGS (3)
  1. NEVIRAPINE [Suspect]
     Indication: HIV INFECTION
  2. LAMIVUDINE [Suspect]
     Indication: HIV INFECTION
  3. ANTIVIRAL DRUGS (ZIDOVUDINE OR STAVUDINE) [Suspect]
     Indication: HIV INFECTION

REACTIONS (6)
  - IMMUNE RECONSTITUTION SYNDROME [None]
  - LYMPH NODE TUBERCULOSIS [None]
  - MENINGITIS TUBERCULOUS [None]
  - PERITONEAL TUBERCULOSIS [None]
  - PULMONARY TUBERCULOSIS [None]
  - TUBERCULOSIS [None]
